FAERS Safety Report 19594989 (Version 1)
Quarter: 2021Q3

REPORT INFORMATION
  Report Type: Spontaneous
  Country: US (occurrence: US)
  Receive Date: 20210722
  Receipt Date: 20210722
  Transmission Date: 20211014
  Serious: Yes (Other)
  Sender: FDA-Public Use
  Company Number: US-PURDUE-USA-2020-0274150

PATIENT
  Sex: Female

DRUGS (1)
  1. TRAMADOL CR TABLETS (RHODES 21?745) [Suspect]
     Active Substance: TRAMADOL
     Indication: PAIN
     Dosage: UNKNOWN
     Route: 048

REACTIONS (7)
  - Disturbance in attention [Unknown]
  - Tooth loss [Unknown]
  - Amnesia [Unknown]
  - Abdominal discomfort [Unknown]
  - Alopecia [Unknown]
  - Drug dependence [Unknown]
  - Depression [Unknown]
